FAERS Safety Report 17966535 (Version 1)
Quarter: 2020Q3

REPORT INFORMATION
  Report Type: Report from Study
  Country: JP (occurrence: JP)
  Receive Date: 20200701
  Receipt Date: 20200701
  Transmission Date: 20201103
  Serious: Yes (Other)
  Sender: FDA-Public Use
  Company Number: JP-ACCORD-186875

PATIENT
  Sex: Female

DRUGS (9)
  1. MELPHALAN. [Suspect]
     Active Substance: MELPHALAN
     Indication: NEUROBLASTOMA
     Dosage: 100 MG/M2, REDUCED TO 60 MG/M2?/D 2 CONSECUTIVE DAYS IN THE SECOND HDCT
  2. ETOPOSIDE. [Suspect]
     Active Substance: ETOPOSIDE
     Indication: NEUROBLASTOMA
  3. CISPLATIN. [Suspect]
     Active Substance: CISPLATIN
     Indication: NEUROBLASTOMA
     Dosage: 5 CYCLES, ON DAYS 1?5
  4. CYCLOPHOSPHAMIDE/CYCLOPHOSPHAMIDE MONOHYDRATE [Suspect]
     Active Substance: CYCLOPHOSPHAMIDE
     Indication: NEUROBLASTOMA
     Dosage: 5 CYCLES, ON DAY 1
  5. VINCRISTINE [Suspect]
     Active Substance: VINCRISTINE
     Indication: NEUROBLASTOMA
     Dosage: 5 CYCLES, ON DAY 1
  6. PIRARUBICIN [Suspect]
     Active Substance: PIRARUBICIN
     Indication: NEUROBLASTOMA
     Dosage: 5 CYCLES, ON DAY 3
  7. CARBOPLATIN. [Suspect]
     Active Substance: CARBOPLATIN
     Indication: NEUROBLASTOMA
  8. BUSULFAN. [Suspect]
     Active Substance: BUSULFAN
     Indication: NEUROBLASTOMA
     Dosage: 1.2 MG/KG X 16
     Route: 042
  9. FILGRASTIM/GRANULOCYTE COLONY STIMULATING/LENOGRASTIM [Concomitant]
     Active Substance: GRANULOCYTE COLONY-STIMULATING FACTOR NOS
     Dosage: BEGINNING 5 DAYS AFTER THE STEM CELL RESCUE
     Route: 042

REACTIONS (2)
  - Renal impairment [Recovering/Resolving]
  - Gastrointestinal mucosal disorder [Recovered/Resolved]
